FAERS Safety Report 6120005-2 (Version None)
Quarter: 2009Q1

REPORT INFORMATION
  Report Type: 
  Country: None (occurrence: None)
  Receive Date: 20090316
  Receipt Date: 20090312
  Transmission Date: 20090719
  Serious: Yes (Life-Threatening, Hospitalization)
  Sender: FDA-Public Use
  Company Number: BR-B.I. PHARMACEUTICALS,INC./RIDGEFIELD-2009-BR-00215BR

PATIENT
  Sex: Female
  Weight: 60 kg

DRUGS (4)
  1. COMBIVENT [Suspect]
     Indication: FATIGUE
     Dosage: SEE NARRATIVE
     Route: 055
     Dates: start: 20030101
  2. COMBIVENT [Suspect]
     Indication: ASTHMA
  3. SPIRIVA [Suspect]
     Indication: FATIGUE
     Dosage: 36MCG
     Route: 055
     Dates: start: 20080901, end: 20081001
  4. SPIRIVA [Suspect]
     Indication: ASTHMA

REACTIONS (5)
  - CARDIO-RESPIRATORY ARREST [None]
  - COMA [None]
  - DRUG INEFFECTIVE [None]
  - HEPATIC NEOPLASM [None]
  - OVERDOSE [None]
